FAERS Safety Report 23234550 (Version 1)
Quarter: 2023Q4

REPORT INFORMATION
  Report Type: Spontaneous
  Country: US (occurrence: None)
  Receive Date: 20231127
  Receipt Date: 20231127
  Transmission Date: 20240109
  Serious: Yes (Death)
  Sender: FDA-Public Use
  Company Number: None

PATIENT
  Age: 82 Year
  Sex: Male

DRUGS (11)
  1. VELTASSA [Suspect]
     Active Substance: PATIROMER
     Indication: Hyperkalaemia
     Dosage: FREQUENCY : DAILY;?
     Route: 048
     Dates: start: 202012, end: 202311
  2. RANITIDINE 150MG [Concomitant]
  3. ALBUTEROL HFA INH [Concomitant]
  4. ALLOPURINOL 300MG [Concomitant]
  5. ASPIRIN 81MG EC LOW DOSE TABLETS [Concomitant]
  6. CALCITRIOL 0.25MCG CAPSULES [Concomitant]
  7. FLOMAX 0.4MG CAPSULES [Concomitant]
  8. LIPITOR 40MG TABLETS [Concomitant]
  9. METOPROLOL TARTRATE 25MG TABLETS [Concomitant]
  10. PERCOCET [Concomitant]
  11. SPIRIVA 18MCG [Concomitant]

REACTIONS (1)
  - Death [None]

NARRATIVE: CASE EVENT DATE: 20231113
